FAERS Safety Report 15591904 (Version 2)
Quarter: 2019Q1

REPORT INFORMATION
  Report Type: Spontaneous
  Country: GB (occurrence: GB)
  Receive Date: 20181106
  Receipt Date: 20190220
  Transmission Date: 20190417
  Serious: Yes (Hospitalization)
  Sender: FDA-Public Use
  Company Number: GB-NOVOPROD-629865

PATIENT
  Age: 73 Year
  Sex: Female
  Weight: 66 kg

DRUGS (3)
  1. LIRAGLUTIDE [Suspect]
     Active Substance: LIRAGLUTIDE
     Indication: TYPE 2 DIABETES MELLITUS
     Dosage: 0.6 MG
     Route: 065
     Dates: start: 20170721, end: 20180801
  2. LOSARTAN. [Concomitant]
     Active Substance: LOSARTAN
     Indication: HYPERTENSION
     Dosage: 100 MG
     Route: 065
  3. ACETYLSALICYLIC ACID [Concomitant]
     Active Substance: ASPIRIN
     Indication: ANGINA PECTORIS
     Dosage: 75 MG
     Route: 065

REACTIONS (4)
  - Myocardial infarction [Recovered/Resolved]
  - Pancreatitis acute [Recovered/Resolved]
  - Cholelithiasis [Unknown]
  - Respiratory failure [Recovered/Resolved]
